FAERS Safety Report 10485691 (Version 1)
Quarter: 2014Q4

REPORT INFORMATION
  Report Type: Spontaneous
  Country: US (occurrence: US)
  Receive Date: 20141001
  Receipt Date: 20141001
  Transmission Date: 20150528
  Serious: Yes (Hospitalization)
  Sender: FDA-Public Use
  Company Number: US-AUROBINDO-AUR-APL-2014-10408

PATIENT
  Age: 60 Year
  Sex: Female
  Weight: 77.1 kg

DRUGS (11)
  1. CLONIDINE. [Suspect]
     Active Substance: CLONIDINE
     Indication: HYPERTENSION
     Dosage: 0.2 MG, TWO TIMES A DAY
     Route: 065
  2. GEODON [Suspect]
     Active Substance: ZIPRASIDONE HYDROCHLORIDE\ZIPRASIDONE MESYLATE
     Dosage: ONE 60 MG AND ONE 40 MG
     Route: 065
  3. GEODON [Suspect]
     Active Substance: ZIPRASIDONE HYDROCHLORIDE\ZIPRASIDONE MESYLATE
     Dosage: 80 MG AND 20 MG
     Route: 065
     Dates: start: 201106
  4. GEODON [Suspect]
     Active Substance: ZIPRASIDONE HYDROCHLORIDE\ZIPRASIDONE MESYLATE
     Dosage: 60 MG, ONCE A DAY, AT DINNER
     Route: 065
     Dates: start: 2012
  5. HYDRALAZINE [Suspect]
     Active Substance: HYDRALAZINE HYDROCHLORIDE
     Indication: HYPERTENSION
     Dosage: 10 MG, TWO TIMES A DAY
     Route: 065
  6. METOPROLOL TARTRATE TABLETS USP 25 MG [Suspect]
     Active Substance: METOPROLOL TARTRATE
     Indication: HYPERTENSION
     Dosage: 25 MG, TWO TIMES A DAY
     Route: 065
     Dates: start: 2000
  7. HALDOL [Suspect]
     Active Substance: HALOPERIDOL
     Indication: MENTAL DISABILITY
     Dosage: 2 MG, TWO TIMES A DAY (AT NIGHT)
     Route: 065
  8. HALDOL [Suspect]
     Active Substance: HALOPERIDOL
     Indication: SCHIZOPHRENIA
  9. GEODON [Suspect]
     Active Substance: ZIPRASIDONE HYDROCHLORIDE\ZIPRASIDONE MESYLATE
     Indication: SCHIZOPHRENIA
     Dosage: 60 MG, TWO TIMES A DAY
     Route: 065
  10. GEODON [Suspect]
     Active Substance: ZIPRASIDONE HYDROCHLORIDE\ZIPRASIDONE MESYLATE
     Dosage: 60 MG, ONE IN MORNING AND ONE AT DINNER TIME
     Route: 065
     Dates: start: 201202
  11. AMLODIPINE [Suspect]
     Active Substance: AMLODIPINE BESYLATE
     Indication: HYPERTENSION
     Dosage: 5 MG, ONCE A DAY
     Route: 065

REACTIONS (11)
  - Drug intolerance [Unknown]
  - Sedation [Unknown]
  - Blood cholesterol increased [Unknown]
  - Dizziness [Unknown]
  - Somnolence [Unknown]
  - Fatigue [Unknown]
  - Overweight [Unknown]
  - Feeling abnormal [Unknown]
  - Hyperhidrosis [Recovering/Resolving]
  - Mental disorder [Unknown]
  - White blood cell count decreased [Unknown]

NARRATIVE: CASE EVENT DATE: 201202
